FAERS Safety Report 10062283 (Version 1)
Quarter: 2014Q2

REPORT INFORMATION
  Report Type: Spontaneous
  Country: US (occurrence: US)
  Receive Date: 20140407
  Receipt Date: 20140407
  Transmission Date: 20141212
  Serious: No
  Sender: FDA-Public Use
  Company Number: US-GLAXOSMITHKLINE-A1053227A

PATIENT
  Age: 42 Year
  Sex: Female

DRUGS (4)
  1. BENLYSTA [Suspect]
     Indication: SYSTEMIC LUPUS ERYTHEMATOSUS
     Dosage: 10MGK MONTHLY
     Route: 042
     Dates: start: 2013
  2. PREDNISONE [Concomitant]
  3. SYMBICORT [Concomitant]
  4. PLAQUENIL [Concomitant]

REACTIONS (2)
  - Arthralgia [Recovered/Resolved]
  - Fatigue [Unknown]
